FAERS Safety Report 11183167 (Version 3)
Quarter: 2015Q4

REPORT INFORMATION
  Report Type: Spontaneous
  Country: US (occurrence: US)
  Receive Date: 20150611
  Receipt Date: 20151112
  Transmission Date: 20160304
  Serious: Yes (Death, Other)
  Sender: FDA-Public Use
  Company Number: US-GLAXOSMITHKLINE-US2015079938

PATIENT
  Age: 64 Year
  Sex: Female

DRUGS (18)
  1. POTASSIUM CHLORIDE. [Concomitant]
     Active Substance: POTASSIUM CHLORIDE
  2. ADVAIR DISKUS [Suspect]
     Active Substance: FLUTICASONE PROPIONATE\SALMETEROL XINAFOATE
     Indication: ASTHMA
     Dosage: 1 PUFF(S), BID
     Route: 055
     Dates: start: 201005
  3. ADVAIR DISKUS [Suspect]
     Active Substance: FLUTICASONE PROPIONATE\SALMETEROL XINAFOATE
     Indication: CHRONIC OBSTRUCTIVE PULMONARY DISEASE
  4. MONTELUKAST SODIUM. [Concomitant]
     Active Substance: MONTELUKAST SODIUM
  5. PROAIR HFA [Concomitant]
     Active Substance: ALBUTEROL SULFATE
  6. THEOPHYLLINE [Concomitant]
     Active Substance: THEOPHYLLINE ANHYDROUS
  7. PRAMIPEXOLE. [Concomitant]
     Active Substance: PRAMIPEXOLE
  8. CLARITIN [Concomitant]
     Active Substance: LORATADINE
  9. LUMIGAN EYE DROPS [Concomitant]
  10. MUCINEX [Concomitant]
     Active Substance: GUAIFENESIN
  11. FUROSEMIDE. [Concomitant]
     Active Substance: FUROSEMIDE
  12. IPRATROPIUM BROMIDE. [Concomitant]
     Active Substance: IPRATROPIUM BROMIDE
  13. METOPROLOL [Concomitant]
     Active Substance: METOPROLOL
  14. NITROSTAT [Concomitant]
     Active Substance: NITROGLYCERIN
  15. ATORVASTATIN [Concomitant]
     Active Substance: ATORVASTATIN
  16. ALBUTEROL SULFATE. [Concomitant]
     Active Substance: ALBUTEROL SULFATE
  17. IRBESARTAN. [Concomitant]
     Active Substance: IRBESARTAN
  18. ISOSORBIDE. [Concomitant]
     Active Substance: ISOSORBIDE

REACTIONS (2)
  - Death [Fatal]
  - Cataract [Unknown]

NARRATIVE: CASE EVENT DATE: 20150806
